FAERS Safety Report 9178173 (Version 2)
Quarter: 2012Q4

REPORT INFORMATION
  Report Type: 
  Country: CA (occurrence: CA)
  Receive Date: 20121024
  Receipt Date: 20121205
  Transmission Date: 20130627
  Serious: Yes (Other)
  Sender: FDA-Public Use
  Company Number: CA-RB-031150-11

PATIENT
  Age: 38 None
  Sex: Female

DRUGS (3)
  1. SUBOXONE TABLET [Suspect]
     Indication: DRUG DEPENDENCE
     Route: 060
     Dates: start: 20110426, end: 20111216
  2. ELTROXIN [Concomitant]
     Indication: HYPOTHYROIDISM
     Route: 065
  3. CYMBALTA [Concomitant]
     Indication: DEPRESSION
     Route: 065
     Dates: start: 2010

REACTIONS (2)
  - Abortion spontaneous [Recovered/Resolved]
  - Exposure during pregnancy [Recovered/Resolved]
